FAERS Safety Report 4753853-1 (Version None)
Quarter: 2005Q3

REPORT INFORMATION
  Report Type: 
  Country: None (occurrence: None)
  Receive Date: 20050826
  Receipt Date: 20020208
  Transmission Date: 20060218
  Serious: Yes (Hospitalization)
  Sender: FDA-Public Use
  Company Number: FR-GLAXOSMITHKLINE-B0259366A

PATIENT
  Age: 20 Day
  Weight: 4.1 kg

DRUGS (7)
  1. RETROVIR [Suspect]
     Indication: ANTIVIRAL PROPHYLAXIS
     Route: 048
     Dates: start: 20000306
  2. RETROVIR [Suspect]
     Indication: HIV INFECTION
     Dates: start: 20000101
  3. COMBIVIR [Suspect]
     Indication: HIV INFECTION
     Dates: start: 20000101
  4. RETROVIR [Suspect]
     Dates: start: 20000306, end: 20000306
  5. VIRACEPT [Suspect]
     Indication: HIV INFECTION
     Dates: start: 20000101
  6. DIDANOSINE [Suspect]
     Indication: HIV INFECTION
  7. BACTRIM [Concomitant]

REACTIONS (10)
  - BLOOD KETONE BODY DECREASED [None]
  - BLOOD LACTIC ACID INCREASED [None]
  - CAESAREAN SECTION [None]
  - DRUG EXPOSURE DURING PREGNANCY [None]
  - LABORATORY TEST ABNORMAL [None]
  - LACTATE PYRUVATE RATIO INCREASED [None]
  - METABOLIC DISORDER [None]
  - METABOLIC FUNCTION TEST [None]
  - OBESITY [None]
  - TUBERCULOSIS [None]
